FAERS Safety Report 14868074 (Version 2)
Quarter: 2019Q4

REPORT INFORMATION
  Report Type: Spontaneous
  Country: FR (occurrence: FR)
  Receive Date: 20180509
  Receipt Date: 20191029
  Transmission Date: 20200122
  Serious: Yes (Hospitalization)
  Sender: FDA-Public Use
  Company Number: FR-BAUSCH-BL-2018-012958

PATIENT
  Age: 69 Year
  Sex: Female
  Weight: 83 kg

DRUGS (4)
  1. SALBUTAMOL [Suspect]
     Active Substance: ALBUTEROL
     Indication: ASTHMA
     Route: 055
     Dates: start: 20180315
  2. PREDNISOLONE. [Suspect]
     Active Substance: PREDNISOLONE
     Indication: ASTHMA
     Route: 048
     Dates: start: 20180315, end: 20180318
  3. SALBUTAMOL [Suspect]
     Active Substance: ALBUTEROL
     Dosage: DOSE INCREASED
     Route: 055
  4. AUGMENTIN [Concomitant]
     Active Substance: AMOXICILLIN\CLAVULANATE POTASSIUM
     Indication: ASTHMA
     Route: 048
     Dates: start: 20180315

REACTIONS (1)
  - Diabetes mellitus inadequate control [Recovered/Resolved]

NARRATIVE: CASE EVENT DATE: 20180318
